FAERS Safety Report 12894786 (Version 2)
Quarter: 2016Q4

REPORT INFORMATION
  Report Type: Spontaneous
  Country: CA (occurrence: CA)
  Receive Date: 20161028
  Receipt Date: 20161125
  Transmission Date: 20170207
  Serious: Yes (Other)
  Sender: FDA-Public Use
  Company Number: CA-ASTRAZENECA-2016SE81137

PATIENT
  Sex: Male

DRUGS (4)
  1. LYRICA [Concomitant]
     Active Substance: PREGABALIN
  2. LYRICA [Concomitant]
     Active Substance: PREGABALIN
  3. LYRICA [Concomitant]
     Active Substance: PREGABALIN
     Dates: start: 20160622
  4. BRILINTA [Suspect]
     Active Substance: TICAGRELOR
     Route: 048
     Dates: start: 20160611

REACTIONS (2)
  - Abnormal dreams [Recovered/Resolved]
  - Poor quality sleep [Recovered/Resolved]
